FAERS Safety Report 7978241-6 (Version None)
Quarter: 2011Q4

REPORT INFORMATION
  Report Type: 
  Country: None (occurrence: None)
  Receive Date: 20111214
  Receipt Date: 20111209
  Transmission Date: 20120403
  Serious: Yes (Hospitalization, Other)
  Sender: FDA-Public Use
  Company Number: GB-PFIZER INC-2011235353

PATIENT
  Age: 52 Year
  Sex: Male

DRUGS (2)
  1. VARENICLINE TARTRATE [Suspect]
     Indication: SMOKING CESSATION THERAPY
     Dosage: 500 UG, 1X/DAY
     Route: 048
     Dates: start: 20110701
  2. VARENICLINE TARTRATE [Suspect]
     Dosage: 1 MG, 1X/DAY
     Route: 048
     Dates: start: 20110701

REACTIONS (6)
  - TRANSIENT PSYCHOSIS [None]
  - NEGLECT OF PERSONAL APPEARANCE [None]
  - ABNORMAL BEHAVIOUR [None]
  - DELUSION [None]
  - AGITATION [None]
  - PARANOIA [None]
